FAERS Safety Report 20161156 (Version 1)
Quarter: 2021Q4

REPORT INFORMATION
  Report Type: Spontaneous
  Country: US (occurrence: None)
  Receive Date: 20211207
  Receipt Date: 20211207
  Transmission Date: 20220303
  Serious: Yes (Hospitalization)
  Sender: FDA-Public Use
  Company Number: None

PATIENT
  Age: 75 Year
  Sex: Female
  Weight: 85.95 kg

DRUGS (16)
  1. CAPECITABINE [Suspect]
     Active Substance: CAPECITABINE
     Indication: Breast cancer
     Dosage: FREQUENCY : TWICE A DAY;?
     Route: 048
     Dates: start: 20211030, end: 20211203
  2. CLINDAMYCIN [Concomitant]
     Active Substance: CLINDAMYCIN
  3. PROCHLORPERAZINE [Concomitant]
     Active Substance: PROCHLORPERAZINE
  4. CYMBALTA [Concomitant]
     Active Substance: DULOXETINE HYDROCHLORIDE
  5. NORCO [Concomitant]
     Active Substance: ACETAMINOPHEN\HYDROCODONE BITARTRATE
  6. OMEPRAZOLE [Concomitant]
     Active Substance: OMEPRAZOLE
  7. OXYCODONE [Concomitant]
     Active Substance: OXYCODONE
  8. TRULICITY [Concomitant]
     Active Substance: DULAGLUTIDE
  9. ATORVASTATIN [Concomitant]
     Active Substance: ATORVASTATIN
  10. METOPROLOL [Concomitant]
     Active Substance: METOPROLOL
  11. FERROUS SULFATE [Concomitant]
     Active Substance: FERROUS SULFATE
  12. VITAMIN D [Concomitant]
     Active Substance: VITAMIN D NOS
  13. POTASSIUM CHLORIDE [Concomitant]
     Active Substance: POTASSIUM CHLORIDE
  14. MAGNESIUM [Concomitant]
     Active Substance: MAGNESIUM
  15. GABAPENTIN [Concomitant]
     Active Substance: GABAPENTIN
  16. MORPHINE [Concomitant]
     Active Substance: MORPHINE

REACTIONS (2)
  - Cognitive disorder [None]
  - Hypoaesthesia [None]

NARRATIVE: CASE EVENT DATE: 20211203
